FAERS Safety Report 22304307 (Version 2)
Quarter: 2023Q2

REPORT INFORMATION
  Report Type: Spontaneous
  Country: LK (occurrence: LK)
  Receive Date: 20230510
  Receipt Date: 20230517
  Transmission Date: 20230722
  Serious: Yes (Hospitalization, Other)
  Sender: FDA-Public Use
  Company Number: LK-MLMSERVICE-20230501-4260729-1

PATIENT
  Age: 73 Year
  Sex: Male

DRUGS (4)
  1. TAMSULOSIN HYDROCHLORIDE [Suspect]
     Active Substance: TAMSULOSIN HYDROCHLORIDE
     Indication: Prostatic obstruction
     Dosage: UNK
  2. NEOSTIGMINE BROMIDE [Suspect]
     Active Substance: NEOSTIGMINE BROMIDE
     Indication: Impaired gastric emptying
     Dosage: 0.4 MG, QH, FOR 4 H AND REPEATED AFTER 6 H FOR TWO DAYS
     Route: 042
  3. METOCLOPRAMIDE [Concomitant]
     Active Substance: METOCLOPRAMIDE
     Dosage: UNK
  4. ERYTHROMYCIN [Concomitant]
     Active Substance: ERYTHROMYCIN
     Dosage: UNK

REACTIONS (1)
  - Urinary retention [Unknown]
